FAERS Safety Report 24642218 (Version 1)
Quarter: 2024Q4

REPORT INFORMATION
  Report Type: Spontaneous
  Country: JP (occurrence: JP)
  Receive Date: 20241120
  Receipt Date: 20241120
  Transmission Date: 20250115
  Serious: Yes (Death, Hospitalization, Other)
  Sender: GLAND PHARMA LTD
  Company Number: JP-GLANDPHARMA-JP-2024GLNLIT00983

PATIENT
  Age: 72 Year
  Sex: Male

DRUGS (6)
  1. CARBOPLATIN [Suspect]
     Active Substance: CARBOPLATIN
     Indication: Non-small cell lung cancer
     Route: 065
  2. NIVOLUMAB [Suspect]
     Active Substance: NIVOLUMAB
     Indication: Non-small cell lung cancer
     Dosage: TRI-WEEKLY TWICE
     Route: 065
  3. PACLITAXEL [Suspect]
     Active Substance: PACLITAXEL
     Indication: Non-small cell lung cancer
     Dosage: FOR SIX WEEKS
     Route: 065
  4. TEGAFUR [Concomitant]
     Active Substance: TEGAFUR
     Indication: Product used for unknown indication
     Route: 065
  5. GIMERACIL [Concomitant]
     Active Substance: GIMERACIL
     Indication: Product used for unknown indication
     Route: 065
  6. OTERACIL POTASSIUM [Concomitant]
     Active Substance: OTERACIL POTASSIUM
     Indication: Product used for unknown indication
     Route: 065

REACTIONS (2)
  - Interstitial lung disease [Fatal]
  - Product use in unapproved indication [Unknown]
